FAERS Safety Report 5085874-6 (Version None)
Quarter: 2006Q3

REPORT INFORMATION
  Report Type: 
  Country: None (occurrence: None)
  Receive Date: 20060817
  Receipt Date: 20060808
  Transmission Date: 20061208
  Serious: Yes (Other)
  Sender: FDA-Public Use
  Company Number: HQWYE411422JUL05

PATIENT
  Age: 76 Year
  Sex: Female
  Weight: 47.3 kg

DRUGS (3)
  1. MYLOTARG [Suspect]
     Indication: ACUTE MYELOID LEUKAEMIA
     Dosage: 13 MG 1X PER 1 DAY, INTRAVENOUS
     Route: 042
     Dates: start: 20050428, end: 20050428
  2. MYLOTARG [Suspect]
     Indication: ACUTE MYELOID LEUKAEMIA
     Dosage: 13 MG 1X PER 1 DAY, INTRAVENOUS
     Route: 042
     Dates: start: 20050512, end: 20050512
  3. HYDREA [Concomitant]

REACTIONS (2)
  - INFUSION RELATED REACTION [None]
  - PYREXIA [None]
